FAERS Safety Report 9159421 (Version 1)
Quarter: 2013Q1

REPORT INFORMATION
  Report Type: Spontaneous
  Country: ES (occurrence: ES)
  Receive Date: 20130313
  Receipt Date: 20130313
  Transmission Date: 20140127
  Serious: Yes (Other)
  Sender: FDA-Public Use
  Company Number: PHHY2013ES023152

PATIENT
  Age: 33 Year
  Sex: Male

DRUGS (4)
  1. MYFORTIC [Suspect]
     Indication: RENAL TRANSPLANT
     Dosage: 1440 MG DAILY
     Route: 048
     Dates: start: 20120626, end: 20120809
  2. MYFORTIC [Suspect]
     Dosage: 720 MG, UNK
     Route: 048
     Dates: start: 20120823
  3. CARDURAN [Suspect]
     Indication: HYPERTENSION
     Dosage: 16 MG, QD
     Route: 048
     Dates: start: 20120507, end: 20120810
  4. ADVAGRAF [Concomitant]
     Indication: RENAL TRANSPLANT
     Dosage: 14 MG, QD
     Route: 048
     Dates: start: 20120626

REACTIONS (1)
  - Cholestasis [Recovered/Resolved]
